FAERS Safety Report 23291723 (Version 1)
Quarter: 2023Q4

REPORT INFORMATION
  Report Type: Spontaneous
  Country: US (occurrence: None)
  Receive Date: 20231212
  Receipt Date: 20231212
  Transmission Date: 20240109
  Serious: Yes (Hospitalization)
  Sender: FDA-Public Use
  Company Number: None

PATIENT
  Age: 64 Year
  Sex: Female

DRUGS (24)
  1. AMBRISENTAN [Suspect]
     Active Substance: AMBRISENTAN
     Indication: Pulmonary hypertension
     Dosage: 10MG QD ORAL
     Route: 048
     Dates: start: 20230913
  2. SILDENAFIL [Concomitant]
     Active Substance: SILDENAFIL
  3. FUROSEMIDE [Concomitant]
     Active Substance: FUROSEMIDE
  4. SPIRONOLACTONE [Concomitant]
     Active Substance: SPIRONOLACTONE
  5. JARDIANCE [Concomitant]
     Active Substance: EMPAGLIFLOZIN
  6. gllipizide [Concomitant]
  7. metofrmin [Concomitant]
  8. CELLCEPT [Concomitant]
     Active Substance: MYCOPHENOLATE MOFETIL
  9. ASPIRIN [Concomitant]
     Active Substance: ASPIRIN
  10. ATORVASTATIN [Concomitant]
     Active Substance: ATORVASTATIN
  11. ALBUTEROL [Concomitant]
     Active Substance: ALBUTEROL
  12. LEVOTHYROXINE [Concomitant]
     Active Substance: LEVOTHYROXINE
  13. ADVAIR HFA [Concomitant]
     Active Substance: FLUTICASONE PROPIONATE\SALMETEROL XINAFOATE
  14. PREDNISONE [Concomitant]
     Active Substance: PREDNISONE
  15. BENZONATATE [Concomitant]
     Active Substance: BENZONATATE
  16. IPRATROPIUM [Concomitant]
  17. LOSARTAN [Concomitant]
     Active Substance: LOSARTAN
  18. OMEPRAZOLE [Concomitant]
     Active Substance: OMEPRAZOLE
  19. TRAZODONE [Concomitant]
     Active Substance: TRAZODONE HYDROCHLORIDE
  20. ALPRAZOLAM [Concomitant]
     Active Substance: ALPRAZOLAM
  21. PULMICORT TURBUHALER [Concomitant]
     Active Substance: BUDESONIDE
  22. GABAPENTIN [Concomitant]
     Active Substance: GABAPENTIN
  23. TIZANIDINE [Concomitant]
     Active Substance: TIZANIDINE
  24. latanoprost opht drop [Concomitant]

REACTIONS (3)
  - Pneumonia [None]
  - Acute respiratory failure [None]
  - Respiratory failure [None]

NARRATIVE: CASE EVENT DATE: 20231201
